FAERS Safety Report 16218554 (Version 1)
Quarter: 2019Q2

REPORT INFORMATION
  Report Type: Report from Study
  Country: AE (occurrence: AE)
  Receive Date: 20190419
  Receipt Date: 20190419
  Transmission Date: 20190711
  Serious: Yes (Death)
  Sender: FDA-Public Use
  Company Number: AE-ASTRAZENECA-2019SE59849

PATIENT
  Age: 7 Month
  Sex: Male

DRUGS (1)
  1. SYNAGIS [Suspect]
     Active Substance: PALIVIZUMAB
     Indication: RESPIRATORY SYNCYTIAL VIRUS INFECTION
     Dosage: MONTHLY
     Route: 030
     Dates: start: 20181203

REACTIONS (1)
  - Death [Fatal]

NARRATIVE: CASE EVENT DATE: 20181230
